FAERS Safety Report 20613771 (Version 1)
Quarter: 2022Q1

REPORT INFORMATION
  Report Type: Spontaneous
  Country: US (occurrence: US)
  Receive Date: 20220319
  Receipt Date: 20220319
  Transmission Date: 20220423
  Serious: Yes (Death, Hospitalization, Other)
  Sender: FDA-Public Use
  Company Number: US-ALVOGEN-2022-ALVOGEN-118891

PATIENT
  Age: 74 Year
  Sex: Male

DRUGS (8)
  1. NITROGLYCERIN [Suspect]
     Active Substance: NITROGLYCERIN
     Indication: Suicide attempt
  2. ALLOPURINOL [Suspect]
     Active Substance: ALLOPURINOL
     Indication: Suicide attempt
  3. ATORVASTATIN [Suspect]
     Active Substance: ATORVASTATIN
     Indication: Suicide attempt
  4. ACETAMINOPHEN [Suspect]
     Active Substance: ACETAMINOPHEN
     Indication: Suicide attempt
  5. COLCHICINE [Suspect]
     Active Substance: COLCHICINE
     Indication: Suicide attempt
  6. FUROSEMIDE [Suspect]
     Active Substance: FUROSEMIDE
     Indication: Suicide attempt
  7. SALICYLATE [Suspect]
     Active Substance: SALICYLIC ACID
     Indication: Suicide attempt
  8. IBUPROFEN [Suspect]
     Active Substance: IBUPROFEN
     Indication: Suicide attempt

REACTIONS (1)
  - Completed suicide [Fatal]
